FAERS Safety Report 13986077 (Version 2)
Quarter: 2017Q4

REPORT INFORMATION
  Report Type: Spontaneous
  Country: BR (occurrence: BR)
  Receive Date: 20170919
  Receipt Date: 20171107
  Transmission Date: 20180321
  Serious: Yes (Other)
  Sender: FDA-Public Use
  Company Number: BR-AMGEN-BRASP2017140318

PATIENT
  Age: 39 Year
  Sex: Male

DRUGS (1)
  1. ENBREL [Suspect]
     Active Substance: ETANERCEPT
     Indication: PSORIASIS
     Dosage: UNK
     Route: 065
     Dates: start: 20150519, end: 20160530

REACTIONS (2)
  - Blood urine present [Recovered/Resolved]
  - Mesangioproliferative glomerulonephritis [Recovered/Resolved]

NARRATIVE: CASE EVENT DATE: 20160725
